FAERS Safety Report 6121819-5 (Version None)
Quarter: 2009Q1

REPORT INFORMATION
  Report Type: 
  Country: None (occurrence: None)
  Receive Date: 20090317
  Receipt Date: 20090310
  Transmission Date: 20090719
  Serious: Yes (Other)
  Sender: FDA-Public Use
  Company Number: US-ASTRAZENECA-2009UW06298

PATIENT
  Sex: Male
  Weight: 72.6 kg

DRUGS (7)
  1. NEXIUM [Suspect]
     Indication: DYSPLASIA
     Route: 048
  2. NEXIUM [Suspect]
     Indication: BARRETT'S OESOPHAGUS
     Route: 048
  3. NEXIUM [Suspect]
     Route: 048
  4. NEXIUM [Suspect]
     Route: 048
  5. LEVAQUIN [Concomitant]
     Indication: DYSURIA
     Route: 048
  6. LEVAQUIN [Concomitant]
     Indication: ANORECTAL DISCOMFORT
     Route: 048
  7. OMEGA FISH OIL [Concomitant]

REACTIONS (3)
  - ANORECTAL DISCOMFORT [None]
  - DYSURIA [None]
  - PROSTATE CANCER [None]
